FAERS Safety Report 21651326 (Version 1)
Quarter: 2022Q4

REPORT INFORMATION
  Report Type: Report from Study
  Country: CO (occurrence: CO)
  Receive Date: 20221128
  Receipt Date: 20221128
  Transmission Date: 20230112
  Serious: Yes (Other)
  Sender: FDA-Public Use
  Company Number: CO-002147023-NVSC2022CO171291

PATIENT
  Sex: Female

DRUGS (2)
  1. KISQALI [Suspect]
     Active Substance: RIBOCICLIB
     Indication: Hormone receptor positive HER2 negative breast cancer
     Dosage: 600 MG, QD (DAILY FOR 21 DAYS, RESTS 7 DAYS)
     Route: 048
  2. KISQALI [Suspect]
     Active Substance: RIBOCICLIB
     Dosage: UNK
     Route: 048

REACTIONS (13)
  - Blindness [Unknown]
  - Nervousness [Unknown]
  - Fear [Unknown]
  - Cardiac disorder [Unknown]
  - Influenza [Unknown]
  - Lip swelling [Unknown]
  - Mass [Unknown]
  - Insomnia [Unknown]
  - Pain [Unknown]
  - Crying [Unknown]
  - Feeling abnormal [Unknown]
  - Pyrexia [Unknown]
  - Peripheral swelling [Not Recovered/Not Resolved]
